FAERS Safety Report 7221489-9 (Version None)
Quarter: 2011Q1

REPORT INFORMATION
  Report Type: 
  Country: None (occurrence: None)
  Receive Date: 20110112
  Receipt Date: 20110104
  Transmission Date: 20110831
  Serious: Yes (Other)
  Sender: FDA-Public Use
  Company Number: PHHY2010DE66538

PATIENT
  Age: 73 Year
  Sex: Male

DRUGS (2)
  1. AFINITOR [Suspect]
     Indication: RENAL CELL CARCINOMA
     Dosage: 10 MG, DAILY
     Route: 048
     Dates: start: 20100318
  2. OMEPRAZOLE [Concomitant]
     Dosage: 20 MG, DAILY
     Dates: start: 20100316

REACTIONS (3)
  - THROMBOSIS [None]
  - TUMOUR COMPRESSION [None]
  - ANAEMIA [None]
